FAERS Safety Report 13533776 (Version 1)
Quarter: 2017Q2

REPORT INFORMATION
  Report Type: Spontaneous
  Country: US (occurrence: US)
  Receive Date: 20170510
  Receipt Date: 20170510
  Transmission Date: 20170830
  Serious: No
  Sender: FDA-Public Use
  Company Number: US-SA-2017SA050213

PATIENT
  Age: 55 Year
  Sex: Female

DRUGS (1)
  1. XYZAL ALLERGY 24HR [Suspect]
     Active Substance: LEVOCETIRIZINE DIHYDROCHLORIDE
     Indication: HYPERSENSITIVITY
     Dosage: START DATE: 3 DAYS AGO
     Route: 065
     Dates: start: 201703, end: 20170322

REACTIONS (5)
  - Drug ineffective [Unknown]
  - Headache [Unknown]
  - Somnolence [Unknown]
  - Rhinorrhoea [Unknown]
  - Eye irritation [Unknown]

NARRATIVE: CASE EVENT DATE: 201703
